FAERS Safety Report 9695220 (Version 1)
Quarter: 2013Q4

REPORT INFORMATION
  Report Type: Spontaneous
  Country: US (occurrence: US)
  Receive Date: 20131119
  Receipt Date: 20131119
  Transmission Date: 20140711
  Serious: Yes (Hospitalization)
  Sender: FDA-Public Use
  Company Number: US-BAYER-2013-139456

PATIENT
  Age: 18 Year
  Sex: Female
  Weight: 86.17 kg

DRUGS (2)
  1. YASMIN [Suspect]
  2. ZITHROMAX [Concomitant]
     Dosage: 250 MG, UNK

REACTIONS (1)
  - Pulmonary embolism [None]
